FAERS Safety Report 7203966 (Version 6)
Quarter: 2013Q1

REPORT INFORMATION
  Report Type: Spontaneous
  Country: JP (occurrence: JP)
  Receive Date: 20091208
  Receipt Date: 20130313
  Transmission Date: 20140127
  Serious: Yes (Congenital Anomaly, Other)
  Sender: FDA-Public Use
  Company Number: PHHY2009JP52163

PATIENT
  Age: 65 Year
  Sex: Male

DRUGS (13)
  1. TEGRETOL [Suspect]
     Indication: EPILEPSY
     Dosage: UNK UKN, UNK
     Route: 048
     Dates: start: 19790518
  2. TEGRETOL [Suspect]
     Dosage: 400 MG, DAILY
     Route: 048
     Dates: start: 19990629, end: 20081216
  3. CARBAMAZEPINE [Suspect]
     Dosage: UNK UKN, UNK
     Route: 048
     Dates: end: 2007
  4. VALPROIC ACID [Suspect]
  5. NITRAZEPAM [Suspect]
  6. BENZALIN [Concomitant]
     Indication: EPILEPSY
     Dosage: UNK UKN, UNK
     Dates: start: 19990629
  7. ALEVIATIN [Concomitant]
     Indication: EPILEPSY
     Dosage: UNK UKN, UNK
     Dates: start: 19990629, end: 20080106
  8. DEPAKENE [Concomitant]
     Dosage: UNK UKN, UNK
     Dates: start: 19990629
  9. DEPAKENE [Concomitant]
     Dosage: 800 MG,
     Dates: start: 19990629
  10. DEPAKENE [Concomitant]
     Dosage: 600 MG, UNK
     Dates: start: 19990629
  11. DEPAKENE [Concomitant]
     Dosage: 800 MG, UNK
     Dates: start: 19990629
  12. DEPAKENE [Concomitant]
     Dosage: 200 MG, UNK
     Dates: start: 19990629
  13. FLUOCINONIDE [Concomitant]

REACTIONS (34)
  - Mental retardation [Unknown]
  - Hepatitis C [Unknown]
  - Hepatic function abnormal [Unknown]
  - Viral load increased [Unknown]
  - Hepatic cirrhosis [Unknown]
  - Skin ulcer [Recovering/Resolving]
  - Scar [Unknown]
  - Eschar [Unknown]
  - Pigmentation disorder [Unknown]
  - Skin exfoliation [Unknown]
  - Excoriation [Unknown]
  - Skin atrophy [Unknown]
  - Blister [Unknown]
  - Rash [Unknown]
  - Ichthyosis [Unknown]
  - Scab [Recovering/Resolving]
  - Porphyrins urine increased [Recovering/Resolving]
  - Coproporphyrinogen increased [Recovering/Resolving]
  - Drug-induced liver injury [Unknown]
  - Albinism [Unknown]
  - Seborrhoeic dermatitis [Unknown]
  - Eczema [Unknown]
  - Erythema [Recovering/Resolving]
  - Pruritus generalised [Unknown]
  - Hirsutism [Unknown]
  - Skin lesion [Unknown]
  - Dermatitis exfoliative [Unknown]
  - Porphyria non-acute [Recovering/Resolving]
  - Nicotinic acid deficiency [Unknown]
  - Polymorphic light eruption [Unknown]
  - Chronic actinic dermatitis [Unknown]
  - Exsanguination [Recovering/Resolving]
  - Porphyria [Recovering/Resolving]
  - Epilepsy [Unknown]
